FAERS Safety Report 12740947 (Version 2)
Quarter: 2016Q3

REPORT INFORMATION
  Report Type: Spontaneous
  Country: CN (occurrence: CN)
  Receive Date: 20160914
  Receipt Date: 20160915
  Transmission Date: 20161109
  Serious: Yes (Other)
  Sender: FDA-Public Use
  Company Number: CN-009507513-1609CHN005003

PATIENT
  Age: 54 Year
  Sex: Male
  Weight: 54 kg

DRUGS (3)
  1. HYZAAR [Suspect]
     Active Substance: HYDROCHLOROTHIAZIDE\LOSARTAN POTASSIUM
     Indication: HYPERTENSION
     Dosage: 62.5 MG, QD
     Route: 048
     Dates: start: 20150601, end: 20150616
  2. SHI HUI DA [Concomitant]
     Active Substance: LEVAMLODIPINE BESYLATE
     Indication: HYPERTENSION
     Dosage: 2.5 MG, QD
     Route: 048
     Dates: start: 20150601, end: 20150613
  3. URAPIDIL [Concomitant]
     Active Substance: URAPIDIL
     Indication: HYPERTENSION
     Dosage: 30 MG, QD
     Route: 048
     Dates: start: 20150601, end: 20150613

REACTIONS (1)
  - Blood uric acid increased [Recovering/Resolving]

NARRATIVE: CASE EVENT DATE: 20160614
